FAERS Safety Report 4888047-2 (Version None)
Quarter: 2006Q1

REPORT INFORMATION
  Report Type: 
  Country: None (occurrence: None)
  Receive Date: 20060123
  Receipt Date: 20051005
  Transmission Date: 20060701
  Serious: Yes (Death, Hospitalization, Other)
  Sender: FDA-Public Use
  Company Number: US-MERCK-0510USA05596

PATIENT
  Age: 85 Year
  Sex: Female
  Weight: 73 kg

DRUGS (8)
  1. VIOXX [Suspect]
     Indication: ARTHRALGIA
     Route: 048
  2. FUROSEMIDE [Concomitant]
     Route: 065
  3. RISPERDAL [Concomitant]
     Route: 065
  4. ARICEPT [Concomitant]
     Route: 065
  5. PRINIVIL [Concomitant]
     Route: 065
  6. K-DUR 10 [Concomitant]
     Route: 065
  7. LEVAQUIN [Concomitant]
     Route: 048
  8. MECLIZINE [Concomitant]
     Route: 048

REACTIONS (13)
  - ANAEMIA [None]
  - ARTERIOSCLEROSIS CORONARY ARTERY [None]
  - CARDIOVASCULAR DISORDER [None]
  - DEMENTIA ALZHEIMER'S TYPE [None]
  - DEPRESSION [None]
  - DIZZINESS [None]
  - HEADACHE [None]
  - HYPERTENSION [None]
  - MYOCARDIAL INFARCTION [None]
  - PANCREATIC CARCINOMA [None]
  - SPONDYLITIS [None]
  - URINARY TRACT INFECTION [None]
  - URINARY TRACT NEOPLASM [None]
